FAERS Safety Report 7071977-3 (Version None)
Quarter: 2010Q4

REPORT INFORMATION
  Report Type: 
  Country: None (occurrence: None)
  Receive Date: 20101029
  Receipt Date: 20091113
  Transmission Date: 20110411
  Serious: No
  Sender: FDA-Public Use
  Company Number: A0816984A

PATIENT
  Age: 77 Year
  Sex: Female

DRUGS (11)
  1. ADVAIR DISKUS 100/50 [Suspect]
     Dosage: 1PUFF TWICE PER DAY
     Route: 055
     Dates: start: 20091110
  2. PENICILLIN [Concomitant]
  3. ASPIRIN [Concomitant]
  4. CALCIUM [Concomitant]
  5. POTASSIUM CHLORIDE [Concomitant]
  6. METFORMIN [Concomitant]
  7. JANUVIA [Concomitant]
  8. NEXIUM [Concomitant]
  9. AVAPRO [Concomitant]
  10. FUROSEMIDE [Concomitant]
  11. ZETIA [Concomitant]

REACTIONS (2)
  - MUSCLE SPASMS [None]
  - PAIN IN EXTREMITY [None]
